FAERS Safety Report 12769587 (Version 1)
Quarter: 2016Q3

REPORT INFORMATION
  Report Type: Spontaneous
  Country: US (occurrence: US)
  Receive Date: 20160922
  Receipt Date: 20160922
  Transmission Date: 20161109
  Serious: Yes (Other)
  Sender: FDA-Public Use
  Company Number: US-AMGEN-USASP2016126497

PATIENT
  Age: 79 Year
  Sex: Male
  Weight: 72.57 kg

DRUGS (8)
  1. ENBREL [Suspect]
     Active Substance: ETANERCEPT
     Indication: PRODUCT USED FOR UNKNOWN INDICATION
     Dosage: UNK
     Route: 065
  2. PREDNISONE. [Concomitant]
     Active Substance: PREDNISONE
     Indication: ARTHRITIS
     Dosage: 10 MG, AS NECESSARY
  3. TYLENOL [Concomitant]
     Active Substance: ACETAMINOPHEN
     Dosage: UNK, AS NECESSARY
  4. SOTALOL. [Concomitant]
     Active Substance: SOTALOL
     Indication: ARRHYTHMIA
     Dosage: 80 MG, (ONE HALF TABLET THRICE A DAY)
  5. METHOTREXATE. [Concomitant]
     Active Substance: METHOTREXATE
     Indication: RHEUMATOID ARTHRITIS
     Dosage: 2.5 MG, UNK (8 TABLET ONCE WEEK ON SUNDAY)
  6. PREDNISONE. [Concomitant]
     Active Substance: PREDNISONE
     Dosage: 3 DF, UNK
     Dates: start: 20160101
  7. COUMADIN [Concomitant]
     Active Substance: WARFARIN SODIUM
     Indication: CARDIAC VALVE DISEASE
     Dosage: 3 MG, QD
  8. FOLIC ACID. [Concomitant]
     Active Substance: FOLIC ACID
     Dosage: 1 MG, QD

REACTIONS (8)
  - Drug effect delayed [Unknown]
  - Atrial fibrillation [Unknown]
  - Sleep apnoea syndrome [Unknown]
  - Nervous system disorder [Unknown]
  - Hypoaesthesia [Unknown]
  - Condition aggravated [Unknown]
  - Paraesthesia [Unknown]
  - Vertigo [Recovering/Resolving]

NARRATIVE: CASE EVENT DATE: 2014
